FAERS Safety Report 9175426 (Version 1)
Quarter: 2013Q1

REPORT INFORMATION
  Report Type: Spontaneous
  Country: US (occurrence: US)
  Receive Date: 20130320
  Receipt Date: 20130320
  Transmission Date: 20140127
  Serious: Yes (Other)
  Sender: FDA-Public Use
  Company Number: US-PFIZER INC-2013091836

PATIENT
  Age: 57 Year
  Sex: Male
  Weight: 87 kg

DRUGS (6)
  1. LYRICA [Suspect]
     Indication: DIABETIC NEUROPATHY
     Dosage: 50 MG, 3X/DAY (EVERY 8 HOURS)
     Route: 048
     Dates: start: 201212, end: 2013
  2. LYRICA [Suspect]
     Indication: SENSATION OF HEAVINESS
     Dosage: 100 MG (TWO 50 MG PILLS), 3X/DAY
     Route: 048
     Dates: start: 2013, end: 20130312
  3. LYRICA [Suspect]
     Indication: HYPOAESTHESIA
  4. SYNTHROID [Concomitant]
     Indication: THYROID DISORDER
     Dosage: 50 MG DAILY
  5. COZAAR [Concomitant]
     Indication: BLOOD PRESSURE ABNORMAL
     Dosage: 25 MG DAILY
  6. LANTUS [Concomitant]
     Indication: DIABETES MELLITUS
     Dosage: UNK

REACTIONS (9)
  - Road traffic accident [Unknown]
  - Skeletal injury [Unknown]
  - Gait disturbance [Unknown]
  - Depression [Unknown]
  - Anxiety [Unknown]
  - Drug ineffective [Unknown]
  - Chills [Unknown]
  - Nausea [Unknown]
  - Sensory disturbance [Unknown]
